FAERS Safety Report 4318375-0 (Version None)
Quarter: 2004Q1

REPORT INFORMATION
  Report Type: 
  Country: None (occurrence: None)
  Receive Date: 20040315
  Receipt Date: 20040303
  Transmission Date: 20041129
  Serious: Yes (Death, Life-Threatening)
  Sender: FDA-Public Use
  Company Number: GB-JNJFOC-20040300873

PATIENT
  Age: 51 Year
  Sex: Male

DRUGS (4)
  1. REMICADE [Suspect]
     Indication: RHEUMATOID ARTHRITIS
     Dosage: INTRAVENOUS
     Route: 042
     Dates: start: 20030101, end: 20040227
  2. PREDNISOLONE [Concomitant]
  3. MELOXICAM (MELOXICAM) [Concomitant]
  4. DEPO-MEDROL [Concomitant]

REACTIONS (1)
  - MYOCARDIAL INFARCTION [None]
